FAERS Safety Report 9541955 (Version 1)
Quarter: 2013Q3

REPORT INFORMATION
  Report Type: Spontaneous
  Country: US (occurrence: None)
  Receive Date: 20130919
  Receipt Date: 20130919
  Transmission Date: 20140515
  Serious: No
  Sender: FDA-Public Use
  Company Number: None

PATIENT
  Age: 10 Year
  Sex: Male
  Weight: 36.29 kg

DRUGS (1)
  1. GENERIC CONCERTA [Suspect]

REACTIONS (1)
  - Product substitution issue [None]
